FAERS Safety Report 10365970 (Version 1)
Quarter: 2014Q3

REPORT INFORMATION
  Report Type: Spontaneous
  Country: NO (occurrence: NO)
  Receive Date: 20140806
  Receipt Date: 20140806
  Transmission Date: 20150326
  Serious: Yes (Hospitalization)
  Sender: FDA-Public Use
  Company Number: PHHY2014NO094445

PATIENT
  Age: 86 Year
  Sex: Female

DRUGS (9)
  1. ZOPICLONE [Concomitant]
     Active Substance: ZOPICLONE
     Dosage: UNK UKN, UNK
     Route: 048
  2. VOLTAREN [Suspect]
     Active Substance: DICLOFENAC SODIUM
     Dosage: UNK UKN, UNK
     Route: 048
     Dates: start: 20140701
  3. FURIX [Concomitant]
     Active Substance: FUROSEMIDE
     Dosage: 40 MG, QD
     Route: 048
  4. BISOPROLOL [Concomitant]
     Active Substance: BISOPROLOL
     Indication: HYPERTENSION
     Dosage: 10 MG, QD
     Route: 048
  5. LANOXIN [Concomitant]
     Active Substance: DIGOXIN
     Dosage: 0.125 MG, UNK
     Route: 048
  6. CANDESARTAN [Concomitant]
     Active Substance: CANDESARTAN
     Indication: HYPERTENSION
     Dosage: 4 MG, QD
     Route: 048
  7. MAREVAN [Concomitant]
     Active Substance: WARFARIN SODIUM
     Dosage: UNK UKN, UNK
     Route: 048
  8. SOBRIL [Concomitant]
     Active Substance: OXAZEPAM
     Dosage: 5 MG, QOD
  9. EXELON [Concomitant]
     Active Substance: RIVASTIGMINE TARTRATE
     Indication: DEMENTIA
     Dosage: UNK UKN, UNK
     Route: 062

REACTIONS (2)
  - International normalised ratio increased [Recovered/Resolved]
  - Duodenal ulcer [Recovering/Resolving]

NARRATIVE: CASE EVENT DATE: 201407
